FAERS Safety Report 4752570-1 (Version None)
Quarter: 2005Q3

REPORT INFORMATION
  Report Type: 
  Country: None (occurrence: None)
  Receive Date: 20050824
  Receipt Date: 20050808
  Transmission Date: 20060218
  Serious: Yes (Disabling, Other)
  Sender: FDA-Public Use
  Company Number: US_011279538

PATIENT
  Age: 52 Year
  Sex: Female

DRUGS (4)
  1. HUMALOG [Suspect]
     Indication: DIABETES MELLITUS
  2. HUMULIN L [Suspect]
     Indication: DIABETES MELLITUS
  3. INSULIN [Suspect]
     Indication: DIABETES MELLITUS
  4. HUMULIN R [Suspect]
     Indication: DIABETES MELLITUS

REACTIONS (7)
  - AMPUTATION [None]
  - BLOOD GLUCOSE INCREASED [None]
  - EMOTIONAL DISTRESS [None]
  - INJECTION SITE ATROPHY [None]
  - LEUKAEMIA [None]
  - SPINAL OPERATION [None]
  - SPINAL ROD INSERTION [None]
